FAERS Safety Report 5465196-1 (Version None)
Quarter: 2007Q3

REPORT INFORMATION
  Report Type: 
  Country: None (occurrence: None)
  Receive Date: 20070920
  Receipt Date: 20070905
  Transmission Date: 20080115
  Serious: Yes (Hospitalization)
  Sender: FDA-Public Use
  Company Number: A-US2007-17631

PATIENT
  Age: 54 Year
  Sex: Male

DRUGS (11)
  1. TRACLEER [Suspect]
     Indication: PULMONARY HYPERTENSION
     Dosage: 125 MG, BID, ORAL; 62.5 MG, BID, ORAL
     Route: 048
     Dates: start: 20060831, end: 20061003
  2. TRACLEER [Suspect]
     Indication: PULMONARY HYPERTENSION
     Dosage: 125 MG, BID, ORAL; 62.5 MG, BID, ORAL
     Route: 048
     Dates: start: 20061004, end: 20070411
  3. REVATIO/VIAGRA [Concomitant]
  4. FLOLAN [Concomitant]
  5. DIURETICS [Concomitant]
  6. OXYGEN (OXYGEN) [Concomitant]
  7. DIGOXIN [Concomitant]
  8. ANTIDEPRESSANTS [Concomitant]
  9. OXYCODONE HCL [Concomitant]
  10. FLONASE [Concomitant]
  11. TESSALON [Concomitant]

REACTIONS (7)
  - ABDOMINAL DISTENSION [None]
  - DIZZINESS [None]
  - FATIGUE [None]
  - HYPERLIPIDAEMIA [None]
  - OEDEMA [None]
  - PALPITATIONS [None]
  - PLEURAL EFFUSION [None]
